FAERS Safety Report 13916143 (Version 1)
Quarter: 2017Q3

REPORT INFORMATION
  Report Type: Spontaneous
  Country: US (occurrence: None)
  Receive Date: 20170827
  Receipt Date: 20170827
  Transmission Date: 20171127
  Serious: No
  Sender: FDA-Public Use
  Company Number: None

PATIENT
  Sex: Female

DRUGS (1)
  1. IBRANCE [Suspect]
     Active Substance: PALBOCICLIB
     Indication: PRODUCT USED FOR UNKNOWN INDICATION
     Dosage: 125MG TAKE ONE CAPSULE (125MG) BY MOUTH ONCE DAILY WITH FOOD AT THE SAME TIME ORAL
     Route: 048
     Dates: start: 20161027

REACTIONS (1)
  - Motion sickness [None]
